FAERS Safety Report 8704810 (Version 2)
Quarter: 2012Q4

REPORT INFORMATION
  Report Type: 
  Country: US (occurrence: US)
  Receive Date: 20120803
  Receipt Date: 20120828
  Transmission Date: 20130627
  Serious: Yes (Other)
  Sender: FDA-Public Use
  Company Number: US-009507513-1207USA010297

PATIENT

DRUGS (2)
  1. FOSAMAX [Suspect]
     Dosage: UNK
     Route: 048
     Dates: start: 200401, end: 201006
  2. FOSAMAX [Suspect]
     Dosage: UNK
     Route: 048
     Dates: start: 200401, end: 201006

REACTIONS (3)
  - Femur fracture [Unknown]
  - Multiple injuries [None]
  - Bone disorder [None]
